FAERS Safety Report 6638267-1 (Version None)
Quarter: 2010Q1

REPORT INFORMATION
  Report Type: 
  Country: None (occurrence: None)
  Receive Date: 20100317
  Receipt Date: 20100308
  Transmission Date: 20100710
  Serious: Yes (Hospitalization)
  Sender: FDA-Public Use
  Company Number: US-SANOFI-AVENTIS-2010SA014888

PATIENT
  Sex: Female

DRUGS (2)
  1. FLUDARABINE PHOSPHATE [Suspect]
     Route: 048
  2. LEUKINE [Suspect]
     Route: 065

REACTIONS (2)
  - ASTHENIA [None]
  - SYNCOPE [None]
